FAERS Safety Report 6828644 (Version 2)
Quarter: 2013Q1

REPORT INFORMATION
  Report Type: Spontaneous
  Country: FR (occurrence: FR)
  Receive Date: 20081201
  Receipt Date: 20130314
  Transmission Date: 20140127
  Serious: Yes (Hospitalization)
  Sender: FDA-Public Use
  Company Number: FR-PFIZER INC-2008100323

PATIENT
  Age: 80 Year
  Sex: Male

DRUGS (3)
  1. LYRICA [Suspect]
     Dosage: 50 MG DAILY
     Route: 048
     Dates: start: 20081001
  2. LYRICA [Suspect]
     Dosage: 75 MG DAILY
     Route: 048
     Dates: start: 20081004, end: 20081015
  3. IMUREL [Suspect]
     Indication: MUSCULAR WEAKNESS
     Dosage: 50 MG, 3X/DAY
     Route: 048
     Dates: start: 20080808, end: 20081015

REACTIONS (2)
  - Agranulocytosis [Recovered/Resolved]
  - Pyrexia [Recovered/Resolved]
